FAERS Safety Report 19841981 (Version 1)
Quarter: 2021Q3

REPORT INFORMATION
  Report Type: Spontaneous
  Country: US (occurrence: US)
  Receive Date: 20210915
  Receipt Date: 20210915
  Transmission Date: 20211014
  Serious: No
  Sender: FDA-Public Use
  Company Number: US-CASPER PHARMA LLC-2020CAS000541

PATIENT

DRUGS (3)
  1. IMURAN [Suspect]
     Active Substance: AZATHIOPRINE
     Indication: COLITIS ULCERATIVE
     Dosage: UNK
     Route: 065
     Dates: start: 202008
  2. LIALDA [Concomitant]
     Active Substance: MESALAMINE
     Indication: COLITIS ULCERATIVE
     Dosage: UNK
     Route: 065
  3. ASACOL [Concomitant]
     Active Substance: MESALAMINE
     Indication: COLITIS ULCERATIVE
     Dosage: UNK
     Route: 065

REACTIONS (6)
  - Vomiting [Unknown]
  - Hypersensitivity [Unknown]
  - Eating disorder symptom [Unknown]
  - Asthenia [Unknown]
  - Weight decreased [Unknown]
  - Product use in unapproved indication [Unknown]
